FAERS Safety Report 10944496 (Version 1)
Quarter: 2015Q1

REPORT INFORMATION
  Report Type: Spontaneous
  Country: US (occurrence: None)
  Receive Date: 20150320
  Receipt Date: 20150320
  Transmission Date: 20150721
  Serious: Yes (Hospitalization)
  Sender: FDA-Public Use
  Company Number: None

PATIENT
  Age: 76 Year
  Sex: Female
  Weight: 80.7 kg

DRUGS (1)
  1. LETROZOLE. [Suspect]
     Active Substance: LETROZOLE
     Dosage: BEVACIZUMAB WAS DISCONTINUED 12/24/2012 D/T GI BLEED
     Dates: end: 20150228

REACTIONS (1)
  - Asthma [None]

NARRATIVE: CASE EVENT DATE: 20150228
